FAERS Safety Report 20862915 (Version 1)
Quarter: 2022Q2

REPORT INFORMATION
  Report Type: Spontaneous
  Country: US (occurrence: US)
  Receive Date: 20220523
  Receipt Date: 20220523
  Transmission Date: 20220721
  Serious: No
  Sender: FDA-Public Use
  Company Number: US-NORTHSTAR HEALTHCARE HOLDINGS-US-2021NSR000041

PATIENT
  Age: 26 Year
  Sex: Female
  Weight: 68.027 kg

DRUGS (3)
  1. HYDROXYZINE HYDROCHLORIDE [Suspect]
     Active Substance: HYDROXYZINE HYDROCHLORIDE
     Indication: Insomnia
     Dosage: 80 PERCENT OF TIME ONLY HAD TO TAKE 1 TAB/NIGHT USU. BTWN 8-9PM
     Route: 048
     Dates: start: 202105, end: 202107
  2. HYDROXYZINE HYDROCHLORIDE [Suspect]
     Active Substance: HYDROXYZINE HYDROCHLORIDE
     Dosage: 2 WKS AGO STARTED TAKING ONE-HALF TABLET EVERY NIGHT
     Route: 048
     Dates: start: 202107, end: 20210710
  3. HYDROXYZINE HYDROCHLORIDE [Suspect]
     Active Substance: HYDROXYZINE HYDROCHLORIDE
     Dosage: 1 TABLET, EVERY NIGHT
     Route: 048
     Dates: start: 202107

REACTIONS (2)
  - Nausea [Recovered/Resolved]
  - Withdrawal syndrome [Recovered/Resolved]

NARRATIVE: CASE EVENT DATE: 20210711
